FAERS Safety Report 4679929-5 (Version None)
Quarter: 2005Q2

REPORT INFORMATION
  Report Type: 
  Country: None (occurrence: None)
  Receive Date: 20050531
  Receipt Date: 20050518
  Transmission Date: 20051028
  Serious: Yes (Other)
  Sender: FDA-Public Use
  Company Number: 2003036352

PATIENT
  Age: 41 Year
  Sex: Female
  Weight: 78.0187 kg

DRUGS (8)
  1. NEURONTIN [Suspect]
     Indication: MULTIPLE SCLEROSIS
     Dosage: ORAL
     Route: 048
     Dates: start: 20000321, end: 20030101
  2. NEURONTIN [Suspect]
     Indication: PAIN
     Dosage: ORAL
     Route: 048
     Dates: start: 20000321, end: 20030101
  3. PROZAC [Concomitant]
  4. BACLOFEN [Concomitant]
  5. PRILOSEC [Concomitant]
  6. NITROSTAT [Concomitant]
  7. CARBAMAZEPINE [Concomitant]
  8. ADDERALL 10 [Concomitant]

REACTIONS (11)
  - CONDITION AGGRAVATED [None]
  - DEPRESSION [None]
  - DIARRHOEA [None]
  - DISEASE PROGRESSION [None]
  - HYPERREFLEXIA [None]
  - HYPERTENSION [None]
  - MULTIPLE SCLEROSIS [None]
  - NAUSEA [None]
  - PANIC ATTACK [None]
  - PHOTOPHOBIA [None]
  - WEIGHT DECREASED [None]
